FAERS Safety Report 19122602 (Version 7)
Quarter: 2021Q3

REPORT INFORMATION
  Report Type: Spontaneous
  Country: PL (occurrence: PL)
  Receive Date: 20210412
  Receipt Date: 20210928
  Transmission Date: 20211014
  Serious: Yes (Hospitalization, Other)
  Sender: FDA-Public Use
  Company Number: PL-MYLANLABS-2021M1020719

PATIENT
  Age: 76 Year
  Sex: Male

DRUGS (20)
  1. VENETOCLAX. [Suspect]
     Active Substance: VENETOCLAX
     Indication: INFECTION PROPHYLAXIS
     Dosage: 100 MILLIGRAM
     Route: 048
     Dates: start: 20201130, end: 20201130
  2. VENETOCLAX. [Suspect]
     Active Substance: VENETOCLAX
     Dosage: 200 MILLIGRAM
     Route: 048
     Dates: start: 20201201, end: 20201201
  3. VENETOCLAX. [Suspect]
     Active Substance: VENETOCLAX
     Dosage: 400 MILLIGRAM
     Route: 048
     Dates: start: 20201202, end: 20201202
  4. VENETOCLAX. [Suspect]
     Active Substance: VENETOCLAX
     Dosage: UNK, UNKNOWN DOSE
     Dates: start: 20201126, end: 20201130
  5. ZOFRAN [Concomitant]
     Active Substance: ONDANSETRON HYDROCHLORIDE
     Indication: PROPHYLAXIS OF NAUSEA AND VOMITING
     Dosage: UNK
     Route: 065
     Dates: start: 20201130, end: 20201206
  6. MILURIT [Concomitant]
     Active Substance: ALLOPURINOL
     Indication: TUMOUR LYSIS SYNDROME
     Dosage: UNK
     Route: 065
     Dates: start: 20201130, end: 20201206
  7. MILURIT [Concomitant]
     Active Substance: ALLOPURINOL
     Indication: PROPHYLAXIS
     Dosage: UNK
  8. CIPRINOL                           /00697202/ [Concomitant]
     Active Substance: CIPROFLOXACIN HYDROCHLORIDE
     Indication: INFECTION PROPHYLAXIS
  9. AZACITIDINE. [Suspect]
     Active Substance: AZACITIDINE
     Indication: ACUTE MYELOID LEUKAEMIA
     Dosage: 75 MILLIGRAM/SQ. METER
     Route: 058
     Dates: start: 20201130, end: 20201206
  10. PEVONEDISTAT [Suspect]
     Active Substance: PEVONEDISTAT
     Indication: ACUTE MYELOID LEUKAEMIA
     Dosage: 20 MILLIGRAM/SQ. METER
     Route: 041
     Dates: start: 20201130, end: 20210108
  11. VENETOCLAX. [Suspect]
     Active Substance: VENETOCLAX
     Indication: ACUTE MYELOID LEUKAEMIA
     Dosage: UNK
     Route: 048
  12. FUROSEMIDE. [Concomitant]
     Active Substance: FUROSEMIDE
     Indication: TUMOUR LYSIS SYNDROME
     Dosage: UNK
     Route: 065
     Dates: start: 20201130, end: 20201206
  13. FUROSEMIDE. [Concomitant]
     Active Substance: FUROSEMIDE
     Indication: PROPHYLAXIS
     Dosage: UNK
  14. DUOMOX                             /00249601/ [Concomitant]
     Indication: INFECTION
     Dosage: UNK
     Route: 065
     Dates: start: 20201126, end: 20201130
  15. SODIUM CHLORIDE. [Concomitant]
     Active Substance: SODIUM CHLORIDE
     Indication: TUMOUR LYSIS SYNDROME
     Dosage: UNK
     Route: 065
     Dates: start: 20201130, end: 20201206
  16. SODIUM CHLORIDE. [Concomitant]
     Active Substance: SODIUM CHLORIDE
     Indication: PROPHYLAXIS
     Dosage: UNK
  17. KCL [Concomitant]
     Active Substance: POTASSIUM CHLORIDE
     Indication: PROPHYLAXIS
     Dosage: UNK
  18. CIPRINOL                           /00697202/ [Concomitant]
     Active Substance: CIPROFLOXACIN HYDROCHLORIDE
     Indication: INFECTION
     Dosage: UNK
     Route: 065
     Dates: start: 20201201, end: 20201208
  19. DUOMOX                             /00249601/ [Concomitant]
     Indication: INFECTION PROPHYLAXIS
  20. KCL [Concomitant]
     Active Substance: POTASSIUM CHLORIDE
     Indication: TUMOUR LYSIS SYNDROME
     Dosage: UNK
     Route: 065
     Dates: start: 20201130, end: 20201206

REACTIONS (3)
  - Febrile neutropenia [Recovered/Resolved]
  - Systemic candida [Recovered/Resolved]
  - Erythema multiforme [Recovered/Resolved]

NARRATIVE: CASE EVENT DATE: 20201203
